FAERS Safety Report 9004511 (Version 1)
Quarter: 2013Q1

REPORT INFORMATION
  Report Type: Spontaneous
  Country: US (occurrence: None)
  Receive Date: 20130103
  Receipt Date: 20130103
  Transmission Date: 20140127
  Serious: No
  Sender: FDA-Public Use
  Company Number: None

PATIENT
  Age: 64 Year
  Sex: Female
  Weight: 51.26 kg

DRUGS (1)
  1. BOTOX [Suspect]
     Indication: URGE INCONTINENCE
     Dosage: 100 UNITS MULTIPLE INJECTION IM
     Dates: start: 20120503

REACTIONS (2)
  - Urinary retention [None]
  - Bladder catheterisation [None]
